FAERS Safety Report 4703520-5 (Version None)
Quarter: 2005Q2

REPORT INFORMATION
  Report Type: 
  Country: None (occurrence: None)
  Receive Date: 20050630
  Receipt Date: 20050625
  Transmission Date: 20051028
  Serious: Yes (Hospitalization)
  Sender: FDA-Public Use
  Company Number: JP-BOEHRINGER INGELHEIM PHARMACEUTICALS, INC.-2005-BP-10823NB

PATIENT
  Sex: Female

DRUGS (4)
  1. SPIRIVA [Suspect]
     Indication: LYMPHANGIOLEIOMYOMATOSIS
     Route: 055
     Dates: start: 20050420, end: 20050504
  2. SEREVENT [Suspect]
     Indication: LYMPHANGIOLEIOMYOMATOSIS
     Route: 055
     Dates: start: 20050420
  3. TERSIGAN [Concomitant]
     Indication: LYMPHANGIOLEIOMYOMATOSIS
     Route: 055
     Dates: start: 20040830
  4. LIPITOR [Concomitant]
     Indication: HYPERCHOLESTEROLAEMIA
     Route: 048
     Dates: start: 20041118

REACTIONS (1)
  - ACUTE ABDOMEN [None]
